FAERS Safety Report 6645761-6 (Version None)
Quarter: 2010Q1

REPORT INFORMATION
  Report Type: 
  Country: None (occurrence: None)
  Receive Date: 20100318
  Receipt Date: 20100318
  Transmission Date: 20100710
  Serious: Yes (Other)
  Sender: FDA-Public Use
  Company Number: None

PATIENT
  Age: 24 Year
  Sex: Female
  Weight: 88.905 kg

DRUGS (16)
  1. ZOLOFT [Suspect]
     Indication: AMNESIA
     Dosage: TAKE 1 AND 1 HALF PILLS PER DAY PO
     Route: 048
     Dates: start: 20050201, end: 20050824
  2. ZOLOFT [Suspect]
     Indication: ANXIETY
     Dosage: TAKE 1 AND 1 HALF PILLS PER DAY PO
     Route: 048
     Dates: start: 20050201, end: 20050824
  3. ZOLOFT [Suspect]
     Indication: ATTENTION DEFICIT/HYPERACTIVITY DISORDER
     Dosage: TAKE 1 AND 1 HALF PILLS PER DAY PO
     Route: 048
     Dates: start: 20050201, end: 20050824
  4. ZOLOFT [Suspect]
     Indication: OBSESSIVE-COMPULSIVE DISORDER
     Dosage: TAKE 1 AND 1 HALF PILLS PER DAY PO
     Route: 048
     Dates: start: 20050201, end: 20050824
  5. ZOLOFT [Suspect]
     Indication: OPPOSITIONAL DEFIANT DISORDER
     Dosage: TAKE 1 AND 1 HALF PILLS PER DAY PO
     Route: 048
     Dates: start: 20050201, end: 20050824
  6. ZOLOFT [Suspect]
     Indication: PANIC REACTION
     Dosage: TAKE 1 AND 1 HALF PILLS PER DAY PO
     Route: 048
     Dates: start: 20050201, end: 20050824
  7. ZOLOFT [Suspect]
     Indication: SOCIAL PROBLEM
     Dosage: TAKE 1 AND 1 HALF PILLS PER DAY PO
     Route: 048
     Dates: start: 20050201, end: 20050824
  8. ZOLOFT [Suspect]
     Indication: STRESS
     Dosage: TAKE 1 AND 1 HALF PILLS PER DAY PO
     Route: 048
     Dates: start: 20050201, end: 20050824
  9. ZOLOFT [Suspect]
     Indication: AMNESIA
     Dosage: TAKE 1 AND 1 HALF PILLS PER DAY PO
     Route: 048
     Dates: start: 20100317, end: 20100317
  10. ZOLOFT [Suspect]
     Indication: ANXIETY
     Dosage: TAKE 1 AND 1 HALF PILLS PER DAY PO
     Route: 048
     Dates: start: 20100317, end: 20100317
  11. ZOLOFT [Suspect]
     Indication: ATTENTION DEFICIT/HYPERACTIVITY DISORDER
     Dosage: TAKE 1 AND 1 HALF PILLS PER DAY PO
     Route: 048
     Dates: start: 20100317, end: 20100317
  12. ZOLOFT [Suspect]
     Indication: OBSESSIVE-COMPULSIVE DISORDER
     Dosage: TAKE 1 AND 1 HALF PILLS PER DAY PO
     Route: 048
     Dates: start: 20100317, end: 20100317
  13. ZOLOFT [Suspect]
     Indication: OPPOSITIONAL DEFIANT DISORDER
     Dosage: TAKE 1 AND 1 HALF PILLS PER DAY PO
     Route: 048
     Dates: start: 20100317, end: 20100317
  14. ZOLOFT [Suspect]
     Indication: PANIC REACTION
     Dosage: TAKE 1 AND 1 HALF PILLS PER DAY PO
     Route: 048
     Dates: start: 20100317, end: 20100317
  15. ZOLOFT [Suspect]
     Indication: SOCIAL PROBLEM
     Dosage: TAKE 1 AND 1 HALF PILLS PER DAY PO
     Route: 048
     Dates: start: 20100317, end: 20100317
  16. ZOLOFT [Suspect]
     Indication: STRESS
     Dosage: TAKE 1 AND 1 HALF PILLS PER DAY PO
     Route: 048
     Dates: start: 20100317, end: 20100317

REACTIONS (9)
  - APATHY [None]
  - DIZZINESS [None]
  - DRUG EXPOSURE DURING PREGNANCY [None]
  - HYPOAESTHESIA [None]
  - NAUSEA [None]
  - PREGNANCY [None]
  - TREMOR [None]
  - VISUAL IMPAIRMENT [None]
  - VOMITING [None]
